FAERS Safety Report 14163670 (Version 1)
Quarter: 2017Q4

REPORT INFORMATION
  Report Type: Report from Study
  Country: BR (occurrence: BR)
  Receive Date: 20171106
  Receipt Date: 20171106
  Transmission Date: 20180321
  Serious: Yes (Hospitalization)
  Sender: FDA-Public Use
  Company Number: PHHO2017BR000945

PATIENT
  Age: 81 Year
  Sex: Female
  Weight: 71 kg

DRUGS (1)
  1. ACZ885 [Suspect]
     Active Substance: CANAKINUMAB
     Indication: CARDIOVASCULAR EVENT PROPHYLAXIS
     Dosage: 50 MG, QUARTERLY
     Route: 058
     Dates: start: 20121018

REACTIONS (1)
  - Cellulitis [Not Recovered/Not Resolved]

NARRATIVE: CASE EVENT DATE: 20161211
